FAERS Safety Report 18229445 (Version 1)
Quarter: 2020Q3

REPORT INFORMATION
  Report Type: Spontaneous
  Country: US (occurrence: US)
  Receive Date: 20200903
  Receipt Date: 20200903
  Transmission Date: 20201103
  Serious: Yes (Hospitalization)
  Sender: FDA-Public Use
  Company Number: US-MYLANLABS-2020M1076219

PATIENT
  Age: 44 Year
  Sex: Male

DRUGS (4)
  1. ACETYLCYSTEINE. [Suspect]
     Active Substance: ACETYLCYSTEINE
     Indication: ANTIINFLAMMATORY THERAPY
     Dosage: 600 MILLIGRAM, BID FOR 1 WEEK
     Route: 042
     Dates: start: 202004, end: 202004
  2. ACETYLCYSTEINE. [Suspect]
     Active Substance: ACETYLCYSTEINE
     Indication: HAEMOLYSIS
     Dosage: 30000 MILLIGRAM, THREE TIMES/24 HOURS
     Route: 042
     Dates: start: 20200330
  3. ACETYLCYSTEINE. [Suspect]
     Active Substance: ACETYLCYSTEINE
     Dosage: 600 MILLIGRAM, BID
     Route: 042
     Dates: start: 20200425
  4. HYDROXYCHLOROQUINE [Suspect]
     Active Substance: HYDROXYCHLOROQUINE
     Indication: COVID-19
     Dosage: 400 MILLIGRAM
     Route: 065
     Dates: start: 20200321

REACTIONS (2)
  - Off label use [Unknown]
  - Haemolysis [Recovering/Resolving]
